FAERS Safety Report 5034361-X (Version None)
Quarter: 2006Q2

REPORT INFORMATION
  Report Type: 
  Country: None (occurrence: None)
  Receive Date: 20060626
  Receipt Date: 20060614
  Transmission Date: 20061013
  Serious: Yes (Other)
  Sender: FDA-Public Use
  Company Number: US-ROCHE-452048

PATIENT
  Age: 51 Year
  Sex: Male

DRUGS (9)
  1. PEGASYS [Suspect]
     Dosage: ROUTE REPORTED AS INJECTABLE.
     Route: 050
     Dates: start: 20060130
  2. COPEGUS [Suspect]
     Route: 048
     Dates: start: 20060130
  3. SKELAXIN [Concomitant]
     Dosage: AS NEEDED.
     Route: 048
  4. AMBIEN [Concomitant]
     Indication: SOMNOLENCE
     Dosage: TAKEN AT NIGHT.
     Route: 048
  5. FLEXERIL [Concomitant]
     Indication: BACK PAIN
     Route: 048
  6. BENADRYL [Concomitant]
     Indication: SOMNOLENCE
     Dosage: TAKEN AT NIGHT.
     Route: 048
  7. WELLBUTRIN [Concomitant]
     Indication: DEPRESSION
     Dosage: FIRST THERAPY WAS 150 MG DAILY, THEN THE DOSE WAS CHANGED TO 150 MG IN THE MORNING AND 150 MG IN TH+
     Route: 048
  8. LEXAPRO [Concomitant]
     Indication: DEPRESSION
     Dosage: FIRST THERAPY WAS 10 MG DAILY, THEN THE DOSAGE WAS CHANGED TO 10 MG IN THE MORNING AND 10 MG IN THE+
     Route: 048
  9. CHLORPROMAZINE [Concomitant]
     Dosage: AT NIGHT.

REACTIONS (4)
  - BIPOLAR I DISORDER [None]
  - DEPRESSION [None]
  - HEADACHE [None]
  - NAUSEA [None]
